FAERS Safety Report 19090482 (Version 5)
Quarter: 2021Q4

REPORT INFORMATION
  Report Type: Spontaneous
  Country: GB (occurrence: GB)
  Receive Date: 20210405
  Receipt Date: 20211020
  Transmission Date: 20220303
  Serious: Yes (Life-Threatening, Other)
  Sender: FDA-Public Use
  Company Number: GB-JNJFOC-20201226035

PATIENT
  Age: 47 Year
  Sex: Female

DRUGS (39)
  1. METRONIDAZOLE [Suspect]
     Active Substance: METRONIDAZOLE
     Indication: Product used for unknown indication
     Dosage: UNK
     Route: 065
  2. STELARA [Suspect]
     Active Substance: USTEKINUMAB
     Indication: Psoriasis
     Dosage: 45 MILLIGRAM (12 WEEK)
     Route: 058
     Dates: start: 20171008
  3. STELARA [Suspect]
     Active Substance: USTEKINUMAB
     Dosage: 45 MILLIGRAM (12 WEEKS)
     Route: 058
     Dates: start: 20200626
  4. STELARA [Suspect]
     Active Substance: USTEKINUMAB
     Dosage: UNK
  5. FLUTICASONE FUROATE [Concomitant]
     Active Substance: FLUTICASONE FUROATE
     Indication: Product used for unknown indication
     Dosage: ,
     Route: 045
     Dates: start: 20210202
  6. AZITHROMYCIN ANHYDROUS [Concomitant]
     Active Substance: AZITHROMYCIN ANHYDROUS
     Indication: Product used for unknown indication
     Dosage: 12 TABLETS,
     Route: 065
     Dates: start: 20210202
  7. CARBOCYSTEINE [Concomitant]
     Active Substance: CARBOCYSTEINE
     Indication: Product used for unknown indication
     Dosage: 168 CAPSULES,FREQUENCY TIME: 1;UNIT: DAYS
     Route: 065
     Dates: start: 20210202
  8. CARBOCYSTEINE [Concomitant]
     Active Substance: CARBOCYSTEINE
     Indication: Product used for unknown indication
     Dosage: 1125 MILLIGRAM, 1 DAY
     Route: 065
  9. CALCIPOTRIENE [Concomitant]
     Active Substance: CALCIPOTRIENE
     Indication: Product used for unknown indication
     Dosage: 60 MILLILITER, UNK,FREQUENCY TIME: 1;UNIT: DAYS
     Route: 065
     Dates: start: 20210202
  10. CHOLECALCIFEROL [Concomitant]
     Active Substance: CHOLECALCIFEROL
     Indication: Product used for unknown indication
     Dosage: 200 CAPSULES,FREQUENCY TIME: 1;UNIT: DAYS
     Route: 065
     Dates: start: 20201022
  11. CHOLECALCIFEROL [Concomitant]
     Active Substance: CHOLECALCIFEROL
     Indication: Product used for unknown indication
  12. Colofac MR [Concomitant]
     Indication: Abdominal distension
     Dosage: 405 MILLIGRAM, ONCE A DAY (84 TABLETS)
     Route: 065
     Dates: start: 20191220
  13. CITALOPRAM [Concomitant]
     Active Substance: CITALOPRAM HYDROBROMIDE
     Indication: Product used for unknown indication
     Dosage: 20 MILLIGRAM, UNK,FREQUENCY TIME: 1;UNIT: DAYS
     Route: 065
     Dates: start: 20210202
  14. CHLORPHENIRAMINE [Concomitant]
     Active Substance: CHLORPHENIRAMINE
     Indication: Product used for unknown indication
     Dosage: 12 MILLIGRAM, ONCE A DAY(56 TABLETS,FREQUENCY TIME: 1;UNIT: DAYS)
     Route: 065
     Dates: start: 20210202
  15. EXOREX [Concomitant]
     Active Substance: COAL TAR
     Indication: Pruritus
     Dosage: 100 MILLILITER, UNK,
     Route: 065
     Dates: start: 20210111
  16. EXOREX [Concomitant]
     Active Substance: COAL TAR
     Indication: Pruritus
  17. FEXOFENADINE [Concomitant]
     Active Substance: FEXOFENADINE HYDROCHLORIDE
     Indication: Product used for unknown indication
     Dosage: 120 MILLIGRAM, UNK,FREQUENCY TIME: 1;UNIT: DAYS
     Route: 065
     Dates: start: 20210202
  18. FERROUS FUMARATE [Concomitant]
     Active Substance: FERROUS FUMARATE
     Indication: Product used for unknown indication
     Dosage: 210 MILLIGRAM, UNK,FREQUENCY TIME: 1;UNIT: DAYS
     Route: 065
     Dates: start: 20210202
  19. Hydromol [Concomitant]
     Indication: Product used for unknown indication
     Dosage: 1500 GRAM, ONCE A DAY
     Route: 065
  20. HYDROXYZINE [Concomitant]
     Active Substance: HYDROXYZINE HYDROCHLORIDE
     Indication: Product used for unknown indication
     Dosage: 25 MILLIGRAM, UNK,FREQUENCY TIME: 1;UNIT: DAYS
     Route: 065
     Dates: start: 20210202
  21. HYPROMELLOSES [Concomitant]
     Active Substance: HYPROMELLOSES
     Indication: Product used for unknown indication
     Dosage: 40 MILLILITER, UNK,FREQUENCY TIME: 1;UNIT: DAYS
     Route: 065
     Dates: start: 20210202
  22. FENTANYL [Concomitant]
     Active Substance: FENTANYL
     Indication: Product used for unknown indication
     Dosage: 12 MICRONES,FREQUENCY TIME: 72;UNIT: HOURS
     Route: 062
     Dates: start: 20210202
  23. FENTANYL [Concomitant]
     Active Substance: FENTANYL
     Indication: Product used for unknown indication
  24. NAPROXEN [Concomitant]
     Active Substance: NAPROXEN
     Indication: Product used for unknown indication
     Dosage: 56 TABLETS,FREQUENCY TIME: 1;UNIT: DAYS
     Route: 065
     Dates: start: 20210205
  25. OMEPRAZOLE [Concomitant]
     Active Substance: OMEPRAZOLE
     Indication: Product used for unknown indication
     Dosage: 28 CAPSULES,FREQUENCY TIME: 1;UNIT: DAYS
     Route: 065
     Dates: start: 20210202
  26. OXYBUTYNIN. [Concomitant]
     Active Substance: OXYBUTYNIN CHLORIDE
     Indication: Product used for unknown indication
     Dosage: 56 TABLETS,
     Route: 065
     Dates: start: 20210202
  27. ACETAMINOPHEN [Concomitant]
     Active Substance: ACETAMINOPHEN
     Indication: Product used for unknown indication
     Dosage: 100 TABLETS,FREQUENCY TIME: 1;UNIT: DAYS
     Route: 065
     Dates: start: 20210205
  28. PREGABALIN [Concomitant]
     Active Substance: PREGABALIN
     Indication: Product used for unknown indication
     Dosage: 56 CAPSULES,FREQUENCY TIME: 1;UNIT: DAYS
     Route: 065
     Dates: start: 20210125
  29. PREDNISOLONE [Concomitant]
     Active Substance: PREDNISOLONE
     Indication: Product used for unknown indication
     Dosage: 30 MILLIGRAM, QD,1 DAY, 42 TABLETS
     Route: 065
     Dates: start: 20210111
  30. PREDNISOLONE [Concomitant]
     Active Substance: PREDNISOLONE
     Indication: Product used for unknown indication
  31. PROMETHAZINE HYDROCHLORIDE [Concomitant]
     Active Substance: PROMETHAZINE HYDROCHLORIDE
     Indication: Product used for unknown indication
     Dosage: 25 MILLIGRAM, UNK,
     Route: 065
     Dates: start: 20210202
  32. PROCHLORPERAZINE [Concomitant]
     Active Substance: PROCHLORPERAZINE
     Indication: Dizziness
     Dosage: 10 MILLIGRAM, ONCE A DAY (14 TABLETS)
     Route: 065
  33. ALBUTEROL [Concomitant]
     Active Substance: ALBUTEROL
     Indication: Product used for unknown indication
     Dosage: 200 DOSE,FREQUENCY TIME: 1;UNIT: DAYS
     Route: 065
     Dates: start: 20210202
  34. Sunsense Aftersun [Concomitant]
     Indication: Product used for unknown indication
     Dosage: 75 GRAM, ONCE A DAY
     Route: 065
     Dates: start: 20210202
  35. TOPIRAMATE [Concomitant]
     Active Substance: TOPIRAMATE
     Indication: Product used for unknown indication
     Dosage: 60 TABLETS,FREQUENCY TIME: 1;UNIT: DAYS
     Route: 065
     Dates: start: 20210202
  36. TRELEGY ELLIPTA [Concomitant]
     Active Substance: FLUTICASONE FUROATE\UMECLIDINIUM BROMIDE\VILANTEROL TRIFENATATE
     Indication: Product used for unknown indication
     Dosage: 1 DOSAGE FORM, UNK,FREQUENCY TIME: 1;UNIT: DAYS
     Route: 065
     Dates: start: 20210202
  37. TRELEGY ELLIPTA [Concomitant]
     Active Substance: FLUTICASONE FUROATE\UMECLIDINIUM BROMIDE\VILANTEROL TRIFENATATE
     Indication: Product used for unknown indication
  38. BETAMETHASONE DIPROPIONATE\CALCIPOTRIENE HYDRATE [Concomitant]
     Active Substance: BETAMETHASONE DIPROPIONATE\CALCIPOTRIENE HYDRATE
     Indication: Psoriasis
     Dosage: 60 GRAM, UNK,FREQUENCY TIME: 1;UNIT: DAYS
     Route: 065
     Dates: start: 20210111
  39. OCTINOXATE [Concomitant]
     Active Substance: OCTINOXATE
     Indication: Product used for unknown indication
     Dosage: 75 MILLIGRAM, ONCE A DAY
     Route: 065
     Dates: start: 20210202

REACTIONS (17)
  - Tinnitus [Unknown]
  - Suspected COVID-19 [Unknown]
  - Tendonitis [Unknown]
  - Bronchiectasis [Unknown]
  - Hyperthyroidism [Unknown]
  - Presbyacusis [Unknown]
  - Rotator cuff syndrome [Unknown]
  - Diverticulum intestinal [Unknown]
  - Uterine leiomyoma [Unknown]
  - Hypersensitivity [Unknown]
  - Bursitis [Unknown]
  - Psoriasis [Unknown]
  - Migraine [Unknown]
  - Polyp [Recovered/Resolved]
  - Anaphylactic reaction [Unknown]
  - Diverticulitis [Unknown]
  - Lower respiratory tract infection [Unknown]

NARRATIVE: CASE EVENT DATE: 20171113
